FAERS Safety Report 10689966 (Version 1)
Quarter: 2015Q1

REPORT INFORMATION
  Report Type: Spontaneous
  Country: TR (occurrence: TR)
  Receive Date: 20150105
  Receipt Date: 20150105
  Transmission Date: 20150720
  Serious: Yes (Death, Other)
  Sender: FDA-Public Use
  Company Number: PHHY2015TR000440

PATIENT
  Age: 21 Year
  Sex: Male

DRUGS (3)
  1. CYCLOPHOSPHAMIDE. [Concomitant]
     Active Substance: CYCLOPHOSPHAMIDE
     Indication: STEM CELL TRANSPLANT
     Dosage: 50 MG/KG, QD, 4 DAYS
     Route: 065
  2. CICLOSPORIN [Suspect]
     Active Substance: CYCLOSPORINE
     Indication: PROPHYLAXIS AGAINST GRAFT VERSUS HOST DISEASE
     Route: 065
  3. BUSULFAN [Concomitant]
     Active Substance: BUSULFAN
     Indication: STEM CELL TRANSPLANT
     Dosage: 4 MG/KG, QD, 4 DAYS

REACTIONS (9)
  - Haemoptysis [Fatal]
  - Graft versus host disease in lung [Unknown]
  - Bronchiectasis [Fatal]
  - Chronic graft versus host disease in skin [Unknown]
  - Graft versus host disease in eye [Unknown]
  - Chronic graft versus host disease [Unknown]
  - Graft versus host disease in gastrointestinal tract [Unknown]
  - Respiratory distress [Fatal]
  - Chronic graft versus host disease in liver [Unknown]
